FAERS Safety Report 7421267-1 (Version None)
Quarter: 2011Q2

REPORT INFORMATION
  Report Type: 
  Country: None (occurrence: None)
  Receive Date: 20110418
  Receipt Date: 20110404
  Transmission Date: 20111010
  Serious: Yes (Hospitalization)
  Sender: FDA-Public Use
  Company Number: DE-EISAI INC-E2020-08984-SPO-DE

PATIENT
  Age: 81 Year
  Sex: Male

DRUGS (7)
  1. SEROQUEL [Interacting]
     Dosage: 50 MG
     Route: 048
     Dates: start: 20110111
  2. CLARITHROMYCIN [Interacting]
     Dosage: 500 MG
     Route: 048
     Dates: start: 20110118, end: 20110202
  3. ARICEPT [Suspect]
     Route: 048
     Dates: start: 20110118
  4. ARCOXIA [Concomitant]
     Dosage: 90 MG
     Route: 048
     Dates: start: 20110111
  5. AMOXICILLIN [Interacting]
     Dosage: 2000 MG
     Route: 048
     Dates: start: 20110118, end: 20110202
  6. PANTOPRAZOLE [Concomitant]
     Dosage: 80 MG
     Route: 048
     Dates: start: 20110125
  7. TRANSTEC [Concomitant]
     Dosage: 35 MG, TAPE
     Dates: start: 20110107

REACTIONS (2)
  - DRUG INTERACTION [None]
  - URINARY RETENTION [None]
